FAERS Safety Report 5603020-4 (Version None)
Quarter: 2008Q1

REPORT INFORMATION
  Report Type: 
  Country: None (occurrence: None)
  Receive Date: 20080125
  Receipt Date: 20080115
  Transmission Date: 20080703
  Serious: Yes (Death, Hospitalization)
  Sender: FDA-Public Use
  Company Number: JP-MERCK-0712USA09215

PATIENT
  Age: 76 Year
  Sex: Female
  Weight: 70 kg

DRUGS (6)
  1. FOSAMAX [Suspect]
     Indication: OSTEOPOROSIS
     Route: 048
     Dates: start: 20071210, end: 20071225
  2. TAKEPRON [Suspect]
     Indication: GASTRIC ULCER
     Route: 048
     Dates: start: 20071122, end: 20071225
  3. PREDONINE [Concomitant]
     Indication: HEPATITIS
     Route: 048
     Dates: start: 20071206, end: 20071216
  4. PREDONINE [Concomitant]
     Route: 048
     Dates: start: 20071217, end: 20071223
  5. PREDONINE [Concomitant]
     Route: 048
     Dates: start: 20071224, end: 20071225
  6. MAGNESIUM OXIDE [Concomitant]
     Indication: CONSTIPATION
     Route: 048
     Dates: start: 20071129, end: 20071225

REACTIONS (3)
  - AGRANULOCYTOSIS [None]
  - DISSEMINATED INTRAVASCULAR COAGULATION [None]
  - SEPTIC SHOCK [None]
